FAERS Safety Report 5767256-4 (Version None)
Quarter: 2008Q2

REPORT INFORMATION
  Report Type: 
  Country: None (occurrence: None)
  Receive Date: 20080609
  Receipt Date: 20080526
  Transmission Date: 20081010
  Serious: Yes (Hospitalization)
  Sender: FDA-Public Use
  Company Number: 08P-062-0453449-00

PATIENT
  Age: 7 Month
  Sex: Male

DRUGS (5)
  1. SYNAGIS [Suspect]
     Indication: IMMUNISATION
     Dosage: 1.2 ML; 0.98 ML; 1 ML; 1.3 ML; 1.35 ML
     Route: 058
     Dates: start: 20071030, end: 20071030
  2. SYNAGIS [Suspect]
     Indication: IMMUNISATION
     Dosage: 1.2 ML; 0.98 ML; 1 ML; 1.3 ML; 1.35 ML
     Route: 058
     Dates: start: 20071129, end: 20071129
  3. SYNAGIS [Suspect]
     Indication: IMMUNISATION
     Dosage: 1.2 ML; 0.98 ML; 1 ML; 1.3 ML; 1.35 ML
     Route: 058
     Dates: start: 20080107, end: 20080107
  4. SYNAGIS [Suspect]
     Indication: IMMUNISATION
     Dosage: 1.2 ML; 0.98 ML; 1 ML; 1.3 ML; 1.35 ML
     Route: 058
     Dates: start: 20080206, end: 20080206
  5. SYNAGIS [Suspect]
     Indication: IMMUNISATION
     Dosage: 1.2 ML; 0.98 ML; 1 ML; 1.3 ML; 1.35 ML
     Route: 058
     Dates: start: 20080319, end: 20080319

REACTIONS (2)
  - GASTROENTERITIS NOROVIRUS [None]
  - PNEUMONIA [None]
